FAERS Safety Report 7120541-6 (Version None)
Quarter: 2010Q4

REPORT INFORMATION
  Report Type: 
  Country: None (occurrence: None)
  Receive Date: 20101124
  Receipt Date: 20101118
  Transmission Date: 20110411
  Serious: Yes (Other)
  Sender: FDA-Public Use
  Company Number: CA-PFIZER INC-2010152282

PATIENT
  Sex: Female

DRUGS (2)
  1. ZELDOX [Suspect]
     Dosage: 20 MG, 1X/DAY
     Dates: start: 20101108, end: 20101114
  2. ZELDOX [Suspect]
     Dosage: 40 MG, 1X/DAY
     Dates: start: 20101115, end: 20101115

REACTIONS (2)
  - INTENTIONAL SELF-INJURY [None]
  - SUICIDAL IDEATION [None]
